FAERS Safety Report 9326282 (Version 1)
Quarter: 2013Q2

REPORT INFORMATION
  Report Type: Report from Study
  Country: MX (occurrence: MX)
  Receive Date: 20130604
  Receipt Date: 20130604
  Transmission Date: 20140414
  Serious: Yes (Other)
  Sender: FDA-Public Use
  Company Number: PHHY2013MX056387

PATIENT
  Age: 49 Year
  Sex: Female

DRUGS (5)
  1. DIOVAN [Suspect]
     Indication: HYPERTENSION
     Dosage: 1 UKN, DAILY
     Dates: start: 20130530
  2. EXFORGE HCT [Suspect]
     Indication: HYPERTENSION
     Dosage: 1 DF(320/10/25MG), DAILY
     Route: 048
     Dates: start: 201302, end: 20130529
  3. EXFORGE HCT [Suspect]
     Indication: RENAL DISORDER
  4. EXFORGE HCT [Suspect]
     Indication: OFF LABEL USE
  5. CONCOR [Concomitant]
     Indication: HYPERTENSION
     Dosage: 1 UKN, DAILY
     Dates: start: 20130530

REACTIONS (2)
  - Renal colic [Not Recovered/Not Resolved]
  - Ureteric injury [Not Recovered/Not Resolved]
